FAERS Safety Report 6680739-8 (Version None)
Quarter: 2010Q2

REPORT INFORMATION
  Report Type: 
  Country: None (occurrence: None)
  Receive Date: 20100413
  Receipt Date: 20100413
  Transmission Date: 20101027
  Serious: No
  Sender: FDA-Public Use
  Company Number: None

PATIENT

DRUGS (1)
  1. KLONOPIN [Suspect]
     Indication: EPILEPSY
     Dosage: TABLET ONE AT 6 AM AND 10 PM. 1/2 TAB AT NOON AND 6 PM = 3 TABS A DAY

REACTIONS (1)
  - CONVULSION [None]
